FAERS Safety Report 11395007 (Version 2)
Quarter: 2016Q1

REPORT INFORMATION
  Report Type: Spontaneous
  Country: BR (occurrence: BR)
  Receive Date: 20150819
  Receipt Date: 20160115
  Transmission Date: 20160525
  Serious: Yes (Hospitalization, Other)
  Sender: FDA-Public Use
  Company Number: BR-ASTRAZENECA-2015SE79104

PATIENT
  Age: 840 Month
  Sex: Female
  Weight: 44 kg

DRUGS (4)
  1. SOMALGIN [Concomitant]
     Active Substance: ASPIRIN\DIHYDROXYALUMINUM AMINOACETATE ANHYDROUS\MAGNESIUM CARBONATE
  2. BRILINTA [Interacting]
     Active Substance: TICAGRELOR
     Indication: CORONARY ARTERY DISEASE
     Dosage: EVERY 12 HOURS
     Route: 048
     Dates: start: 201508
  3. ASPIRIN PREVENT [Interacting]
     Active Substance: ASPIRIN
     Route: 065
     Dates: start: 2015
  4. CRESTOR [Suspect]
     Active Substance: ROSUVASTATIN CALCIUM
     Indication: BLOOD CHOLESTEROL ABNORMAL
     Route: 048

REACTIONS (4)
  - Shock [Unknown]
  - Skin discolouration [Not Recovered/Not Resolved]
  - Drug interaction [Unknown]
  - Coronary artery occlusion [Recovering/Resolving]

NARRATIVE: CASE EVENT DATE: 201506
